FAERS Safety Report 4787552-7 (Version None)
Quarter: 2005Q4

REPORT INFORMATION
  Report Type: 
  Country: None (occurrence: None)
  Receive Date: 20051003
  Receipt Date: 20050912
  Transmission Date: 20060501
  Serious: Yes (Hospitalization)
  Sender: FDA-Public Use
  Company Number: MAG-2005-0000390

PATIENT
  Age: 74 Year
  Sex: Male

DRUGS (2)
  1. MORPHINE SULFATE [Suspect]
     Indication: CANCER PAIN
     Dosage: SEE IMAGE
     Route: 048
  2. MORPHINE [Concomitant]

REACTIONS (7)
  - ABNORMAL BEHAVIOUR [None]
  - ANXIETY [None]
  - DELIRIUM [None]
  - INSOMNIA [None]
  - MENTAL DISORDER [None]
  - PAIN [None]
  - SPEECH DISORDER [None]
